FAERS Safety Report 7368672-X (Version None)
Quarter: 2011Q1

REPORT INFORMATION
  Report Type: 
  Country: None (occurrence: None)
  Receive Date: 20110321
  Receipt Date: 20110321
  Transmission Date: 20110831
  Serious: Yes (Other)
  Sender: FDA-Public Use
  Company Number: None

PATIENT
  Age: 65 Year
  Sex: Female
  Weight: 58.0604 kg

DRUGS (8)
  1. ACETAMINOPHEN AND HYDROCODONE BITARTRATE [Concomitant]
  2. CLONAZEPAM [Concomitant]
  3. PRILOSEC [Concomitant]
  4. ESTRADIOL/NORETHINDRONE [Concomitant]
  5. SUNITINIB [Suspect]
     Indication: BLADDER CANCER
     Dosage: 37.5 MG DAILY ORAL
     Route: 048
     Dates: start: 20101122, end: 20110303
  6. SYNTHROID [Concomitant]
  7. HYDROCHLOROTHIAZIDE [Concomitant]
  8. MIRAPEX [Concomitant]

REACTIONS (3)
  - PLATELET COUNT DECREASED [None]
  - HAEMATOCRIT DECREASED [None]
  - HAEMOGLOBIN DECREASED [None]
